FAERS Safety Report 10818432 (Version 1)
Quarter: 2015Q1

REPORT INFORMATION
  Report Type: Spontaneous
  Country: FI (occurrence: FI)
  Receive Date: 20150218
  Receipt Date: 20150218
  Transmission Date: 20150721
  Serious: Yes (Other)
  Sender: FDA-Public Use
  Company Number: FI-PFIZER INC-2015047896

PATIENT
  Age: 56 Year
  Sex: Female

DRUGS (6)
  1. PREDNISOLON [Concomitant]
     Active Substance: PREDNISOLONE
     Indication: ARTHRITIS REACTIVE
     Dosage: 1X1
     Route: 048
     Dates: start: 20131120
  2. FOLIC ACID. [Concomitant]
     Active Substance: FOLIC ACID
     Indication: PROPHYLAXIS
     Dosage: 5 MG, WEEKLY
     Route: 048
     Dates: start: 20131120
  3. SALAZOPYRIN EN [Suspect]
     Active Substance: SULFASALAZINE
     Indication: ARTHRITIS REACTIVE
     Dosage: 2X2
     Route: 048
     Dates: start: 20140909, end: 20141013
  4. TREXAN [Concomitant]
     Active Substance: METHOTREXATE SODIUM
     Indication: ARTHRITIS REACTIVE
     Dosage: 25 MG, WEEKLY
     Route: 058
     Dates: start: 20140224
  5. FLIXOTIDE [Concomitant]
     Active Substance: FLUTICASONE PROPIONATE
     Indication: ASTHMA
     Dosage: 1X2
     Route: 055
  6. VENTOLINE [Concomitant]
     Active Substance: ALBUTEROL
     Indication: ASTHMA
     Dosage: 1-2X2-4
     Route: 055

REACTIONS (1)
  - Acute generalised exanthematous pustulosis [Recovering/Resolving]

NARRATIVE: CASE EVENT DATE: 20141010
